FAERS Safety Report 14593589 (Version 3)
Quarter: 2018Q2

REPORT INFORMATION
  Report Type: Spontaneous
  Country: PK (occurrence: PK)
  Receive Date: 20180302
  Receipt Date: 20180516
  Transmission Date: 20180711
  Serious: Yes (Hospitalization, Other)
  Sender: FDA-Public Use
  Company Number: PK-JNJFOC-20180227046

PATIENT
  Age: 29 Year
  Sex: Male
  Weight: 40 kg

DRUGS (17)
  1. MOXIFLOXACIN. [Suspect]
     Active Substance: MOXIFLOXACIN
     Indication: TUBERCULOSIS
     Route: 048
     Dates: start: 20171002, end: 20180105
  2. VITAMIN B6 [Concomitant]
     Active Substance: PYRIDOXINE HYDROCHLORIDE
     Indication: PROPHYLAXIS
     Route: 048
     Dates: start: 20180122
  3. AMOXICILLIN. [Suspect]
     Active Substance: AMOXICILLIN
     Indication: TUBERCULOSIS
     Route: 030
     Dates: start: 20171002, end: 20180105
  4. AMOXICILLIN. [Suspect]
     Active Substance: AMOXICILLIN
     Indication: TUBERCULOSIS
     Route: 030
     Dates: start: 20180122
  5. LINEZOLID. [Suspect]
     Active Substance: LINEZOLID
     Indication: TUBERCULOSIS
     Route: 048
     Dates: start: 20180124
  6. IBERET FOLIC [Concomitant]
     Indication: MINERAL SUPPLEMENTATION
     Route: 048
     Dates: start: 20180122
  7. CHEWCAL [Concomitant]
     Indication: BLOOD CALCIUM DECREASED
     Route: 048
     Dates: start: 20171002, end: 20180105
  8. DELAMANID [Suspect]
     Active Substance: DELAMANID
     Indication: TUBERCULOSIS
     Route: 048
     Dates: start: 20171002, end: 20180105
  9. BEDAQUILINE [Suspect]
     Active Substance: BEDAQUILINE
     Indication: TUBERCULOSIS
     Dosage: FOR 2 WEEKS
     Route: 048
     Dates: start: 20171002, end: 20171016
  10. BEDAQUILINE [Suspect]
     Active Substance: BEDAQUILINE
     Indication: TUBERCULOSIS
     Route: 048
     Dates: start: 20180209
  11. PYRAZINAMIDE. [Suspect]
     Active Substance: PYRAZINAMIDE
     Indication: TUBERCULOSIS
     Route: 048
     Dates: start: 20180122
  12. BEDAQUILINE [Suspect]
     Active Substance: BEDAQUILINE
     Indication: TUBERCULOSIS
     Route: 048
     Dates: start: 20171017, end: 20180105
  13. DELAMANID [Suspect]
     Active Substance: DELAMANID
     Indication: TUBERCULOSIS
     Route: 048
     Dates: start: 20180127
  14. CHEWCAL [Concomitant]
     Indication: BLOOD CALCIUM DECREASED
     Route: 048
     Dates: start: 20180122
  15. IBERET FOLIC [Concomitant]
     Indication: MINERAL SUPPLEMENTATION
     Route: 048
     Dates: start: 20171002, end: 20180105
  16. PYRAZINAMIDE. [Suspect]
     Active Substance: PYRAZINAMIDE
     Indication: TUBERCULOSIS
     Route: 048
     Dates: start: 20171002, end: 20180105
  17. LINEZOLID. [Suspect]
     Active Substance: LINEZOLID
     Indication: TUBERCULOSIS
     Route: 048
     Dates: start: 20171002, end: 20180105

REACTIONS (2)
  - Myocardial ischaemia [Recovering/Resolving]
  - Seizure [Recovered/Resolved]

NARRATIVE: CASE EVENT DATE: 20180105
